FAERS Safety Report 8849068 (Version 3)
Quarter: 2012Q4

REPORT INFORMATION
  Report Type: 
  Country: AU (occurrence: AU)
  Receive Date: 20121019
  Receipt Date: 20121214
  Transmission Date: 20130627
  Serious: Yes (Hospitalization, Other)
  Sender: FDA-Public Use
  Company Number: AU-009507513-1210AUS007396

PATIENT
  Age: 49 Year
  Sex: Male

DRUGS (5)
  1. VICTRELIS 200 MG [Suspect]
     Indication: HEPATITIS C
     Dosage: 200 mg, UNK
     Route: 048
  2. RIBAVIRIN [Suspect]
     Indication: HEPATITIS C
     Dosage: 400-800 MG
     Route: 048
  3. PEGINTERFERON ALFA-2B [Suspect]
     Indication: HEPATITIS C
     Dosage: UNK
     Route: 058
  4. TACROLIMUS [Concomitant]
     Indication: TRANSPLANT
     Dosage: 0.5 mg, UNK
     Route: 048
     Dates: start: 2004
  5. AZATHIOPRINE [Concomitant]
     Indication: TRANSPLANT
     Dosage: 150 mg, UNK
     Route: 048
     Dates: start: 2004

REACTIONS (4)
  - Febrile neutropenia [Recovered/Resolved]
  - Anaemia [Recovered/Resolved]
  - Pancytopenia [Recovered/Resolved]
  - Transfusion [Unknown]
